FAERS Safety Report 14106865 (Version 2)
Quarter: 2017Q4

REPORT INFORMATION
  Report Type: Spontaneous
  Country: US (occurrence: US)
  Receive Date: 20171019
  Receipt Date: 20171020
  Transmission Date: 20180321
  Serious: No
  Sender: FDA-Public Use
  Company Number: US-PFIZER INC-2017449395

PATIENT
  Sex: Female

DRUGS (1)
  1. VENLAFAXINE HCL [Suspect]
     Active Substance: VENLAFAXINE HYDROCHLORIDE
     Dosage: 150 MG, UNK

REACTIONS (8)
  - Gait disturbance [Unknown]
  - Loss of personal independence in daily activities [Unknown]
  - Agitation [Unknown]
  - Malaise [Unknown]
  - Dizziness [Unknown]
  - Confusional state [Unknown]
  - Paraesthesia [Unknown]
  - Anxiety [Unknown]
